FAERS Safety Report 12852048 (Version 5)
Quarter: 2016Q4

REPORT INFORMATION
  Report Type: Spontaneous
  Country: IT (occurrence: IT)
  Receive Date: 20161017
  Receipt Date: 20161121
  Transmission Date: 20170207
  Serious: Yes (Hospitalization)
  Sender: FDA-Public Use
  Company Number: IT-TEVA-701621ACC

PATIENT
  Age: 18 Year
  Sex: Male

DRUGS (2)
  1. PARACETAMOLO [Concomitant]
     Active Substance: ACETAMINOPHEN
     Route: 065
  2. KEPPRA [Suspect]
     Active Substance: LEVETIRACETAM
     Indication: GENERALISED TONIC-CLONIC SEIZURE
     Dosage: 250 MILLIGRAM DAILY;

REACTIONS (2)
  - Epilepsy [Unknown]
  - Status epilepticus [Unknown]
